FAERS Safety Report 20118290 (Version 2)
Quarter: 2021Q4

REPORT INFORMATION
  Report Type: Report from Study
  Country: JP (occurrence: JP)
  Receive Date: 20211126
  Receipt Date: 20211227
  Transmission Date: 20220303
  Serious: Yes (Death)
  Sender: FDA-Public Use
  Company Number: JP-UCBJ-CD202110460UCBPHAPROD

PATIENT
  Age: 5 Decade
  Sex: Female
  Weight: 97.2 kg

DRUGS (26)
  1. LACOSAMIDE [Suspect]
     Active Substance: LACOSAMIDE
     Indication: Simple partial seizures
     Dosage: 50 MILLIGRAM, ONCE DAILY (QD)
     Route: 048
     Dates: start: 20181119, end: 20181216
  2. LACOSAMIDE [Suspect]
     Active Substance: LACOSAMIDE
     Indication: Focal dyscognitive seizures
     Dosage: 75 MILLIGRAM, ONCE DAILY (QD)
     Route: 048
     Dates: start: 20181217, end: 20190211
  3. LACOSAMIDE [Suspect]
     Active Substance: LACOSAMIDE
     Indication: Partial seizures with secondary generalisation
     Dosage: 50 MILLIGRAM, 2X/DAY (BID)
     Route: 048
     Dates: start: 20190212, end: 20190414
  4. LACOSAMIDE [Suspect]
     Active Substance: LACOSAMIDE
     Dosage: 62.5 MILLIGRAM, 2X/DAY (BID)
     Route: 048
     Dates: start: 20190415, end: 20190512
  5. LACOSAMIDE [Suspect]
     Active Substance: LACOSAMIDE
     Dosage: 75 MILLIGRAM, 2X/DAY (BID)
     Route: 048
     Dates: start: 20190513, end: 20190610
  6. LACOSAMIDE [Suspect]
     Active Substance: LACOSAMIDE
     Dosage: 100 MILLIGRAM, 2X/DAY (BID)
     Route: 048
     Dates: start: 20190611, end: 20190826
  7. LACOSAMIDE [Suspect]
     Active Substance: LACOSAMIDE
     Dosage: 112.5 MILLIGRAM, 2X/DAY (BID)
     Route: 048
     Dates: start: 20190827, end: 20190930
  8. LACOSAMIDE [Suspect]
     Active Substance: LACOSAMIDE
     Dosage: 125 MILLIGRAM, 2X/DAY (BID)
     Route: 048
     Dates: start: 20191001, end: 20200106
  9. LACOSAMIDE [Suspect]
     Active Substance: LACOSAMIDE
     Dosage: 137.5 MILLIGRAM, 2X/DAY (BID)
     Route: 048
     Dates: start: 20200107, end: 20200301
  10. LACOSAMIDE [Suspect]
     Active Substance: LACOSAMIDE
     Dosage: 150 MILLIGRAM, 2X/DAY (BID)
     Route: 048
     Dates: start: 20200302, end: 20201114
  11. LEVETIRACETAM [Suspect]
     Active Substance: LEVETIRACETAM
     Indication: Simple partial seizures
     Dosage: 250MG DAILY
     Route: 048
     Dates: start: 20200706, end: 20201004
  12. LEVETIRACETAM [Suspect]
     Active Substance: LEVETIRACETAM
     Indication: Focal dyscognitive seizures
     Dosage: 375MG DAILY
     Route: 048
     Dates: start: 20201005, end: 20201114
  13. LEVETIRACETAM [Suspect]
     Active Substance: LEVETIRACETAM
     Indication: Partial seizures with secondary generalisation
  14. CARBAMAZEPINE [Concomitant]
     Active Substance: CARBAMAZEPINE
     Indication: Simple partial seizures
     Dosage: 500 MILLIGRAM, ONCE DAILY (QD)
     Route: 048
     Dates: end: 20190414
  15. CARBAMAZEPINE [Concomitant]
     Active Substance: CARBAMAZEPINE
     Indication: Focal dyscognitive seizures
     Dosage: 400 MILLIGRAM, ONCE DAILY (QD)
     Route: 048
     Dates: start: 20190415, end: 20190512
  16. CARBAMAZEPINE [Concomitant]
     Active Substance: CARBAMAZEPINE
     Indication: Partial seizures with secondary generalisation
     Dosage: 400 MILLIGRAM, ONCE DAILY (QD)
     Route: 048
     Dates: start: 20190513
  17. VALPROATE SODIUM [Concomitant]
     Active Substance: VALPROATE SODIUM
     Indication: Simple partial seizures
     Dosage: 900 MILLIGRAM, ONCE DAILY (QD)
     Route: 048
  18. VALPROATE SODIUM [Concomitant]
     Active Substance: VALPROATE SODIUM
     Indication: Focal dyscognitive seizures
  19. VALPROATE SODIUM [Concomitant]
     Active Substance: VALPROATE SODIUM
     Indication: Partial seizures with secondary generalisation
  20. PHENYTOIN [Concomitant]
     Active Substance: PHENYTOIN
     Indication: Simple partial seizures
     Route: 048
  21. PHENYTOIN [Concomitant]
     Active Substance: PHENYTOIN
     Indication: Focal dyscognitive seizures
  22. PHENYTOIN [Concomitant]
     Active Substance: PHENYTOIN
     Indication: Partial seizures with secondary generalisation
  23. TOPIRAMATE [Concomitant]
     Active Substance: TOPIRAMATE
     Indication: Simple partial seizures
     Route: 048
     Dates: end: 20190111
  24. TOPIRAMATE [Concomitant]
     Active Substance: TOPIRAMATE
     Indication: Focal dyscognitive seizures
  25. TOPIRAMATE [Concomitant]
     Active Substance: TOPIRAMATE
     Indication: Partial seizures with secondary generalisation
  26. LEVOTHYROXINE SODIUM [Concomitant]
     Active Substance: LEVOTHYROXINE SODIUM
     Indication: Product used for unknown indication
     Route: 048

REACTIONS (3)
  - Status epilepticus [Fatal]
  - Somnolence [Unknown]
  - Underdose [Unknown]

NARRATIVE: CASE EVENT DATE: 20200706
